FAERS Safety Report 25614104 (Version 3)
Quarter: 2025Q3

REPORT INFORMATION
  Report Type: Report from Study
  Country: US (occurrence: US)
  Receive Date: 20250728
  Receipt Date: 20250929
  Transmission Date: 20251021
  Serious: Yes (Other)
  Sender: MALLINCKRODT
  Company Number: US-MALLINCKRODT-MNK202504437

PATIENT
  Age: 58 Year
  Sex: Female

DRUGS (1)
  1. CORTICOTROPIN [Suspect]
     Active Substance: CORTICOTROPIN
     Indication: Sarcoidosis
     Dosage: 80 UNITS
     Route: 058
     Dates: start: 20250717

REACTIONS (8)
  - Pulmonary sarcoidosis [Unknown]
  - Cardiac sarcoidosis [Unknown]
  - Implantable defibrillator insertion [Unknown]
  - Illness [Unknown]
  - Balance disorder [Unknown]
  - Fall [Unknown]
  - Injection site bruising [Unknown]
  - Vomiting [Unknown]

NARRATIVE: CASE EVENT DATE: 20250101
